FAERS Safety Report 16008048 (Version 1)
Quarter: 2019Q1

REPORT INFORMATION
  Report Type: Spontaneous
  Country: GB (occurrence: GB)
  Receive Date: 20190226
  Receipt Date: 20190226
  Transmission Date: 20190418
  Serious: Yes (Life-Threatening)
  Sender: FDA-Public Use
  Company Number: GB-MYLANLABS-2019M1018181

PATIENT
  Age: 69 Year
  Sex: Male

DRUGS (7)
  1. REMIFENTANIL [Suspect]
     Active Substance: REMIFENTANIL
     Indication: CERVIX TUMOUR EXCISION
     Dosage: UNK
  2. MIDAZOLAM [Suspect]
     Active Substance: MIDAZOLAM HYDROCHLORIDE
     Indication: CERVIX TUMOUR EXCISION
     Dosage: UNK
  3. PROPOFOL. [Suspect]
     Active Substance: PROPOFOL
     Indication: CERVIX TUMOUR EXCISION
     Dosage: UNK
  4. GENTAMICIN. [Suspect]
     Active Substance: GENTAMICIN
     Indication: CERVIX TUMOUR EXCISION
     Dosage: UNK
  5. ROCURONIUM [Suspect]
     Active Substance: ROCURONIUM BROMIDE
     Indication: CERVIX TUMOUR EXCISION
     Dosage: UNK
  6. TEICOPLANIN [Suspect]
     Active Substance: TEICOPLANIN
     Indication: CERVIX TUMOUR EXCISION
     Dosage: UNK
  7. FENTANYL. [Suspect]
     Active Substance: FENTANYL
     Indication: CERVIX TUMOUR EXCISION
     Dosage: UNK

REACTIONS (7)
  - Pulseless electrical activity [Recovered/Resolved]
  - Anaphylactic reaction [Unknown]
  - Hypotension [Recovered/Resolved]
  - Angioedema [Recovered/Resolved]
  - Cardiac arrest [Unknown]
  - Tachycardia [Recovered/Resolved]
  - Urticaria [Unknown]

NARRATIVE: CASE EVENT DATE: 201311
